FAERS Safety Report 5946683-6 (Version None)
Quarter: 2008Q4

REPORT INFORMATION
  Report Type: 
  Country: None (occurrence: None)
  Receive Date: 20081110
  Receipt Date: 20080815
  Transmission Date: 20090506
  Serious: No
  Sender: FDA-Public Use
  Company Number: A0742853A

PATIENT
  Age: 7 Year
  Sex: Female

DRUGS (3)
  1. ALTABAX [Suspect]
     Indication: STAPHYLOCOCCAL INFECTION
     Route: 061
     Dates: start: 20080813, end: 20080814
  2. ASMANEX TWISTHALER [Concomitant]
  3. SINGULAIR [Concomitant]

REACTIONS (4)
  - CHAPPED LIPS [None]
  - LIP HAEMORRHAGE [None]
  - LIP PAIN [None]
  - LIP SWELLING [None]
